FAERS Safety Report 18278633 (Version 1)
Quarter: 2020Q3

REPORT INFORMATION
  Report Type: Report from Study
  Country: US (occurrence: US)
  Receive Date: 20200917
  Receipt Date: 20200917
  Transmission Date: 20201103
  Serious: Yes (Hospitalization)
  Sender: FDA-Public Use
  Company Number: US-EISAI MEDICAL RESEARCH-EC-2020-079659

PATIENT
  Age: 84 Year
  Sex: Female

DRUGS (4)
  1. KEYTRUDA [Concomitant]
     Active Substance: PEMBROLIZUMAB
  2. LENVIMA [Suspect]
     Active Substance: LENVATINIB
     Route: 048
     Dates: start: 202008, end: 2020
  3. MORPHINE [Suspect]
     Active Substance: MORPHINE
     Indication: PRODUCT USED FOR UNKNOWN INDICATION
     Dosage: FREQUENCY AND DOSING NOT PROVIDED
     Dates: start: 2020, end: 2020
  4. LENVIMA [Suspect]
     Active Substance: LENVATINIB
     Indication: ENDOMETRIAL CANCER
     Route: 048
     Dates: start: 20200819, end: 202008

REACTIONS (11)
  - Diarrhoea [Unknown]
  - Vomiting [Unknown]
  - Confusional state [Recovered/Resolved]
  - Pruritus [Unknown]
  - Hypertension [Recovering/Resolving]
  - Epistaxis [Unknown]
  - Lip blister [Unknown]
  - Tongue erythema [Unknown]
  - Oral mucosal blistering [Unknown]
  - Abdominal pain upper [Recovered/Resolved]
  - Back pain [Recovered/Resolved]

NARRATIVE: CASE EVENT DATE: 2020
